FAERS Safety Report 8860742 (Version 1)
Quarter: 2012Q4

REPORT INFORMATION
  Report Type: 
  Country: US (occurrence: US)
  Receive Date: 20121025
  Receipt Date: 20121025
  Transmission Date: 20130627
  Serious: Yes (Other)
  Sender: FDA-Public Use
  Company Number: CHPA2012US022048

PATIENT
  Age: 45 Year
  Sex: Female

DRUGS (3)
  1. MAALOX ADV MAXIMUM STRENGTH ANTACID/ANTIGAS CHEWABLE [Suspect]
     Indication: DYSPEPSIA
     Dosage: 2 DF, TWICE A WEEK
     Route: 048
  2. HUMALOG [Concomitant]
     Indication: DIABETES MELLITUS
     Dosage: Unk, Unk
  3. LEVEMIR [Concomitant]
     Indication: DIABETES MELLITUS
     Dosage: Unk, Unk

REACTIONS (1)
  - Cardiac disorder [Not Recovered/Not Resolved]
